FAERS Safety Report 16163252 (Version 1)
Quarter: 2019Q2

REPORT INFORMATION
  Report Type: Spontaneous
  Country: US (occurrence: US)
  Receive Date: 20190404
  Receipt Date: 20190404
  Transmission Date: 20190711
  Serious: Yes (Hospitalization, Other)
  Sender: FDA-Public Use
  Company Number: None

PATIENT
  Age: 33 Year
  Sex: Female
  Weight: 78.75 kg

DRUGS (3)
  1. BOTOX COSMETIC [Suspect]
     Active Substance: ONABOTULINUMTOXINA
     Route: 058
     Dates: start: 20190215, end: 20190215
  2. MULTIVITAMIN [Concomitant]
     Active Substance: VITAMINS
     Dates: start: 20190115, end: 20190227
  3. FISH OIL, OMEGA 3, OTC [Concomitant]
     Dates: start: 20190125, end: 20190227

REACTIONS (6)
  - Headache [None]
  - Dizziness [None]
  - Vision blurred [None]
  - Palpitations [None]
  - Dysphagia [None]
  - Fatigue [None]

NARRATIVE: CASE EVENT DATE: 20190225
